FAERS Safety Report 11523836 (Version 1)
Quarter: 2015Q3

REPORT INFORMATION
  Report Type: Spontaneous
  Country: US (occurrence: US)
  Receive Date: 20150903
  Receipt Date: 20150903
  Transmission Date: 20151125
  Serious: Yes (Other)
  Sender: FDA-Public Use
  Company Number: US-ELI_LILLY_AND_COMPANY-US201302008700

PATIENT
  Sex: Female

DRUGS (2)
  1. WELLBUTRIN [Concomitant]
     Active Substance: BUPROPION HYDROCHLORIDE
  2. CYMBALTA [Suspect]
     Active Substance: DULOXETINE HYDROCHLORIDE
     Indication: DEPRESSION
     Dosage: 20 MG, TID
     Dates: start: 20120822

REACTIONS (9)
  - Irritability [Unknown]
  - Decreased appetite [Unknown]
  - Mental disorder [Unknown]
  - Suicidal ideation [Unknown]
  - Depression [Unknown]
  - Crying [Unknown]
  - Anger [Unknown]
  - Weight decreased [Unknown]
  - Headache [Unknown]
